FAERS Safety Report 9540351 (Version 1)
Quarter: 2013Q2

REPORT INFORMATION
  Report Type: Spontaneous
  Country: US (occurrence: None)
  Receive Date: 20130531
  Receipt Date: 20130531
  Transmission Date: 20140414
  Serious: Yes (Death)
  Sender: FDA-Public Use
  Company Number: KV201300076

PATIENT
  Sex: Male

DRUGS (2)
  1. MAKENA (HYDROXYPROGESTERONE CAPROATE 250 MG/ML) INJECTION, 250MG/ML [Suspect]
     Indication: EXPOSURE DURING PREGNANCY
     Dosage: UNK MG, ONCE WEEKLY?
     Dates: start: 201303, end: 201304
  2. KEPPRA (LEVETIRACETAM) [Suspect]

REACTIONS (1)
  - Stillbirth [None]
